FAERS Safety Report 15287014 (Version 2)
Quarter: 2018Q3

REPORT INFORMATION
  Report Type: Report from Study
  Country: None (occurrence: CA)
  Receive Date: 20180817
  Receipt Date: 20180914
  Transmission Date: 20181010
  Serious: Yes (Hospitalization, Other)
  Sender: FDA-Public Use
  Company Number: CA-ABBVIE-18K-028-2452464-00

PATIENT
  Age: 74 Year
  Sex: Male
  Weight: 95.34 kg

DRUGS (5)
  1. DILTIAZEM. [Concomitant]
     Active Substance: DILTIAZEM
     Indication: PRODUCT USED FOR UNKNOWN INDICATION
  2. PANTOPRAZOLE [Concomitant]
     Active Substance: PANTOPRAZOLE
     Indication: PRODUCT USED FOR UNKNOWN INDICATION
  3. ROSUVASTATIN. [Concomitant]
     Active Substance: ROSUVASTATIN
     Indication: PRODUCT USED FOR UNKNOWN INDICATION
  4. EZETIMIBE. [Concomitant]
     Active Substance: EZETIMIBE
     Indication: PRODUCT USED FOR UNKNOWN INDICATION
  5. LUPRON DEPOT [Suspect]
     Active Substance: LEUPROLIDE ACETATE
     Indication: PROSTATE CANCER
     Route: 030
     Dates: start: 20170208

REACTIONS (9)
  - Anaemia [Recovering/Resolving]
  - Haemoglobin abnormal [Unknown]
  - Aortic arteriosclerosis [Unknown]
  - Asthenia [Unknown]
  - Hepatic congestion [Unknown]
  - Hepatic mass [Unknown]
  - Small intestinal obstruction [Unknown]
  - Hepatic steatosis [Unknown]
  - Pleural effusion [Unknown]

NARRATIVE: CASE EVENT DATE: 201808
